FAERS Safety Report 7086241-6 (Version None)
Quarter: 2010Q4

REPORT INFORMATION
  Report Type: 
  Country: None (occurrence: None)
  Receive Date: 20101105
  Receipt Date: 20101101
  Transmission Date: 20110411
  Serious: Yes (Hospitalization)
  Sender: FDA-Public Use
  Company Number: US-AMGEN-USASP2010002694

PATIENT

DRUGS (1)
  1. ENBREL [Suspect]
     Indication: PSORIATIC ARTHROPATHY
     Dates: start: 20050101

REACTIONS (3)
  - INJECTION SITE HAEMATOMA [None]
  - INTERVERTEBRAL DISC PROTRUSION [None]
  - MENISCUS LESION [None]
